FAERS Safety Report 6223709-6 (Version None)
Quarter: 2009Q2

REPORT INFORMATION
  Report Type: 
  Country: None (occurrence: None)
  Receive Date: 20090611
  Receipt Date: 20090603
  Transmission Date: 20091009
  Serious: Yes (Other)
  Sender: FDA-Public Use
  Company Number: US-JNJCH-2009015378

PATIENT
  Age: 36 Year
  Sex: Female
  Weight: 61.2 kg

DRUGS (2)
  1. BENADRYL [Suspect]
     Indication: HYPERSENSITIVITY
     Dosage: TEXT:1 OR 2 TABLETS ONCE DAILY
     Route: 048
  2. ULTRAM [Suspect]
     Indication: BACK DISORDER
     Route: 065

REACTIONS (1)
  - CANDIDIASIS [None]
